FAERS Safety Report 8233384-7 (Version None)
Quarter: 2012Q1

REPORT INFORMATION
  Report Type: 
  Country: None (occurrence: None)
  Receive Date: 20120321
  Receipt Date: 20120308
  Transmission Date: 20120608
  Serious: Yes (Other)
  Sender: FDA-Public Use
  Company Number: KAD201203-000180

PATIENT
  Age: 50 Year
  Sex: Male
  Weight: 71.6683 kg

DRUGS (5)
  1. PEGASYS [Suspect]
     Indication: HEPATITIS C
     Dosage: 180 MICROGRAMS/0.5 ML, ONE TIME WEEKLY, SUBCUTANEOUS
     Route: 058
     Dates: start: 20120119
  2. VICTRELIS [Suspect]
     Indication: HEPATITIS C
     Dosage: DAILY DOSE 2400 MG, ORAL
     Route: 048
     Dates: start: 20120216
  3. AMLODIPINE BESYLATE AND BENAZEPRIL HCL [Concomitant]
  4. ASPIRIN [Concomitant]
  5. RIBAVIRIN [Suspect]
     Indication: HEPATITIS C
     Dosage: DAILY DOSE 1200 MG (600/600), ORAL
     Route: 048
     Dates: start: 20120119

REACTIONS (16)
  - DECREASED APPETITE [None]
  - PYREXIA [None]
  - HAEMOPTYSIS [None]
  - SNEEZING [None]
  - PAIN [None]
  - PNEUMONIA [None]
  - INFLUENZA LIKE ILLNESS [None]
  - BONE PAIN [None]
  - PARAESTHESIA [None]
  - HYPOAESTHESIA [None]
  - RHINORRHOEA [None]
  - WEIGHT DECREASED [None]
  - FEELING ABNORMAL [None]
  - SPUTUM DISCOLOURED [None]
  - CRYING [None]
  - ARTHRALGIA [None]
